FAERS Safety Report 22342316 (Version 2)
Quarter: 2024Q1

REPORT INFORMATION
  Report Type: Spontaneous
  Country: GB (occurrence: GB)
  Receive Date: 20230519
  Receipt Date: 20240123
  Transmission Date: 20240410
  Serious: Yes (Other)
  Sender: FDA-Public Use
  Company Number: GB-MHRA-TPP11949678C1004647YC1648474281452

PATIENT
  Age: 78 Year
  Sex: Female
  Weight: 67 kg

DRUGS (5)
  1. NITROFURANTOIN [Suspect]
     Active Substance: NITROFURANTOIN
     Indication: Ill-defined disorder
     Dosage: 100 MILLIGRAM, TWO TIMES A DAY(FOR THREE DAYS)
     Route: 065
     Dates: start: 20220325
  2. NITROFURANTOIN [Suspect]
     Active Substance: NITROFURANTOIN
     Dosage: UNK
     Route: 065
     Dates: start: 20220328
  3. TIOTROPIUM BROMIDE [Concomitant]
     Active Substance: TIOTROPIUM BROMIDE
     Indication: Ill-defined disorder
     Dosage: UNK, ONCE A DAY (INHALE 1 DOSE ONCE DAILY - GIVES IDENTICAL DOSE)
     Route: 055
     Dates: start: 20211110
  4. NITROFURANTOIN [Concomitant]
     Active Substance: NITROFURANTOIN
     Indication: Ill-defined disorder
     Dosage: 1 DOSAGE FORM, TWO TIMES A DAY ((TAKE ONE CAPSULE TWICE A DAY FOR THREE DAYS))
     Route: 065
     Dates: start: 20220325
  5. ALBUTEROL [Concomitant]
     Active Substance: ALBUTEROL
     Indication: Ill-defined disorder
     Dosage: WHEN REQUIRED
     Route: 055
     Dates: start: 20211110

REACTIONS (4)
  - Autoscopy [Unknown]
  - Confusional state [Recovered/Resolved]
  - Dizziness [Recovered/Resolved]
  - Palpitations [Recovered/Resolved]

NARRATIVE: CASE EVENT DATE: 20220328
